FAERS Safety Report 19570412 (Version 1)
Quarter: 2021Q3

REPORT INFORMATION
  Report Type: Spontaneous
  Country: CA (occurrence: CA)
  Receive Date: 20210716
  Receipt Date: 20210716
  Transmission Date: 20211014
  Serious: Yes (Other)
  Sender: FDA-Public Use
  Company Number: CA-PFIZER INC-2021829308

PATIENT
  Age: 27 Year
  Sex: Male

DRUGS (1)
  1. LORAZEPAM. [Suspect]
     Active Substance: LORAZEPAM
     Dosage: UNK
     Route: 065

REACTIONS (7)
  - Hepatic haemorrhage [Unknown]
  - Muscle tightness [Unknown]
  - Blood pressure abnormal [Unknown]
  - Syncope [Unknown]
  - Drug hypersensitivity [Unknown]
  - Dysstasia [Unknown]
  - Visual field defect [Unknown]
